FAERS Safety Report 4417985-X (Version None)
Quarter: 2004Q3

REPORT INFORMATION
  Report Type: 
  Country: None (occurrence: None)
  Receive Date: 20040804
  Receipt Date: 20040723
  Transmission Date: 20050211
  Serious: Yes (Life-Threatening, Hospitalization, Other)
  Sender: FDA-Public Use
  Company Number: HQWYE477227JUL04

PATIENT
  Age: 34 Year
  Sex: Female

DRUGS (3)
  1. TAZOSIN (PIPERACILLIN/TAZOBACTAM, INJECTION) [Suspect]
     Dosage: ONE DOSE AT 4.5 G
     Route: 042
     Dates: start: 20040616, end: 20040616
  2. METRODINAZOLE (METRONIDAZOLE) [Concomitant]
  3. SODIUM CHLORIDE 0.9% [Concomitant]

REACTIONS (2)
  - HYPERSENSITIVITY [None]
  - MUSCLE RIGIDITY [None]
